FAERS Safety Report 13336970 (Version 4)
Quarter: 2020Q1

REPORT INFORMATION
  Report Type: Spontaneous
  Country: US (occurrence: US)
  Receive Date: 20170315
  Receipt Date: 20200103
  Transmission Date: 20200409
  Serious: No
  Sender: FDA-Public Use
  Company Number: US-PFIZER INC-2017104550

PATIENT
  Age: 60 Year
  Sex: Female
  Weight: 63.5 kg

DRUGS (1)
  1. XELJANZ XR [Suspect]
     Active Substance: TOFACITINIB CITRATE
     Indication: RHEUMATOID ARTHRITIS
     Dosage: 11 MG, 1X/DAY
     Dates: start: 2017

REACTIONS (3)
  - Constipation [Unknown]
  - Oropharyngeal discomfort [Unknown]
  - Infection [Unknown]

NARRATIVE: CASE EVENT DATE: 20170308
